FAERS Safety Report 9280293 (Version 1)
Quarter: 2013Q2

REPORT INFORMATION
  Report Type: Spontaneous
  Country: US (occurrence: None)
  Receive Date: 20130507
  Receipt Date: 20130507
  Transmission Date: 20140414
  Serious: Yes (Life-Threatening, Hospitalization)
  Sender: FDA-Public Use
  Company Number: None

PATIENT
  Age: 64 Year
  Sex: Female
  Weight: 68.04 kg

DRUGS (1)
  1. ANASTROZOLE [Suspect]
     Indication: NEOPLASM MALIGNANT
     Dates: start: 20130228, end: 20130324

REACTIONS (1)
  - Pulmonary embolism [None]
